FAERS Safety Report 4312369-7 (Version None)
Quarter: 2004Q1

REPORT INFORMATION
  Report Type: 
  Country: None (occurrence: None)
  Receive Date: 20040303
  Receipt Date: 20040219
  Transmission Date: 20041129
  Serious: Yes (Death, Life-Threatening, Hospitalization)
  Sender: FDA-Public Use
  Company Number: K200301281

PATIENT
  Age: 72 Year
  Sex: Female
  Weight: 80 kg

DRUGS (5)
  1. ALTACE [Suspect]
     Indication: HYPERTENSION
     Dosage: 1 TABLET, ORAL
     Route: 048
  2. HYDROCHLOROTHIAZIDE [Suspect]
     Indication: HYPERTENSION
     Dosage: 1 TABLET, ORAL
     Route: 048
  3. SUPRAX [Suspect]
     Indication: URINARY TRACT INFECTION
     Dosage: 400 MG, QD, ORAL
     Route: 048
     Dates: start: 20030224, end: 20030302
  4. OFLOXACIN(OFLOXACIN) TABLET, 100MG [Suspect]
     Indication: URINARY TRACT INFECTION
     Dosage: 100 MG,BID, ORAL
     Route: 048
     Dates: start: 20030303, end: 20030305
  5. CO-TRIMOXAZOLE (CO-TRIMOXAZOLE) [Suspect]
     Indication: URINARY TRACT INFECTION

REACTIONS (32)
  - ABDOMINAL PAIN [None]
  - ACTIVATED PARTIAL THROMBOPLASTIN TIME PROLONGED [None]
  - ANOREXIA [None]
  - ASCITES [None]
  - ASTHENIA [None]
  - BLOOD CREATININE INCREASED [None]
  - BLOOD FIBRINOGEN INCREASED [None]
  - BODY TEMPERATURE DECREASED [None]
  - CHEST X-RAY ABNORMAL [None]
  - CHOLELITHIASIS [None]
  - DEHYDRATION [None]
  - DIASTOLIC DYSFUNCTION [None]
  - DRUG TOXICITY [None]
  - DRY SKIN [None]
  - DYSPNOEA AT REST [None]
  - EJECTION FRACTION ABNORMAL [None]
  - ELECTROCARDIOGRAM ST SEGMENT DEPRESSION [None]
  - FLATULENCE [None]
  - HAEMATOCRIT DECREASED [None]
  - HAEMOGLOBIN DECREASED [None]
  - HEART RATE DECREASED [None]
  - HEPATIC FAILURE [None]
  - HEPATIC STEATOSIS [None]
  - HEPATOMEGALY [None]
  - INTERNATIONAL NORMALISED RATIO INCREASED [None]
  - JAUNDICE [None]
  - MITRAL VALVE INCOMPETENCE [None]
  - PLATELET COUNT DECREASED [None]
  - SOMNOLENCE [None]
  - ULTRASOUND ABDOMEN ABNORMAL [None]
  - VOMITING [None]
  - WHITE BLOOD CELL COUNT INCREASED [None]
